FAERS Safety Report 21481128 (Version 1)
Quarter: 2022Q4

REPORT INFORMATION
  Report Type: Other
  Country: US (occurrence: None)
  Receive Date: 20221019
  Receipt Date: 20221019
  Transmission Date: 20230113
  Serious: No
  Sender: FDA-Public Use
  Company Number: US-ROCHE-3068610

PATIENT
  Age: 21 Year
  Sex: Female

DRUGS (2)
  1. COBIMETINIB [Suspect]
     Active Substance: COBIMETINIB
     Indication: Erdheim-Chester disease
     Route: 065
  2. METHOTREXATE [Concomitant]
     Active Substance: METHOTREXATE
     Indication: Erdheim-Chester disease
     Dosage: HIGH-DOSE

REACTIONS (1)
  - Disease progression [Unknown]
